FAERS Safety Report 9587744 (Version 1)
Quarter: 2013Q4

REPORT INFORMATION
  Report Type: Spontaneous
  Country: US (occurrence: US)
  Receive Date: 20131003
  Receipt Date: 20131003
  Transmission Date: 20140711
  Serious: No
  Sender: FDA-Public Use
  Company Number: US-COVIDIEN/TYCO HEALTHCARE/MALLINCKRODT-T201302218

PATIENT
  Age: 55 Year
  Sex: Male

DRUGS (7)
  1. EXALGO EXTENDED RELEASE [Suspect]
     Indication: PAIN
     Dosage: 8 MG, QD
     Dates: start: 20130503
  2. TRAZODONE [Concomitant]
     Indication: DEPRESSION
     Dosage: UNK
  3. CYMBALTA [Concomitant]
     Indication: ANXIETY
     Dosage: UNK
  4. CYMBALTA [Concomitant]
     Indication: DEPRESSION
  5. SIMVASTATIN [Concomitant]
     Indication: BLOOD CHOLESTEROL INCREASED
     Dosage: UNK
  6. GABAPENTIN [Concomitant]
     Dosage: UNK
  7. ANTIHYPERTENSIVES [Concomitant]
     Indication: BLOOD PRESSURE
     Dosage: UNK

REACTIONS (1)
  - Dermatitis contact [Unknown]
